FAERS Safety Report 9911892 (Version 1)
Quarter: 2014Q1

REPORT INFORMATION
  Report Type: Spontaneous
  Country: US (occurrence: US)
  Receive Date: 20140219
  Receipt Date: 20140219
  Transmission Date: 20141002
  Serious: No
  Sender: FDA-Public Use
  Company Number: US-MYLANLABS-2013S1016012

PATIENT
  Age: 61 Year
  Sex: Male

DRUGS (1)
  1. EPIPEN [Suspect]
     Indication: ACCIDENTAL EXPOSURE TO PRODUCT
     Dosage: 0.3 MG, DAILY
     Route: 030
     Dates: start: 20130709, end: 20130709

REACTIONS (1)
  - Accidental exposure to product [Recovered/Resolved]
